FAERS Safety Report 8490725-3 (Version None)
Quarter: 2012Q3

REPORT INFORMATION
  Report Type: 
  Country: None (occurrence: None)
  Receive Date: 20120706
  Receipt Date: 20120702
  Transmission Date: 20120928
  Serious: Yes (Death, Hospitalization)
  Sender: FDA-Public Use
  Company Number: US-AMGEN-USASP2012038681

PATIENT
  Age: 80 Year
  Sex: Female
  Weight: 79 kg

DRUGS (5)
  1. DEXAMETHASONE SODIUM PHOSPHATE [Concomitant]
     Indication: NON-SMALL CELL LUNG CANCER
     Dosage: 12 MG, QWK
     Route: 048
     Dates: start: 20120323, end: 20120616
  2. ONDANSETRON [Concomitant]
     Indication: NON-SMALL CELL LUNG CANCER
     Dosage: 8 MG, QWK
     Route: 048
     Dates: start: 20120323, end: 20120616
  3. XGEVA [Suspect]
     Indication: METASTASES TO BONE
     Dosage: 120 MG, UNK
     Route: 058
     Dates: start: 20120531, end: 20120531
  4. PACLITAXEL [Concomitant]
     Indication: NON-SMALL CELL LUNG CANCER
     Dosage: 90 MG, QWK
     Route: 042
     Dates: start: 20120323, end: 20120616
  5. CARBOPLATIN [Concomitant]
     Indication: NON-SMALL CELL LUNG CANCER
     Dosage: 140 MG, QWK
     Route: 042
     Dates: start: 20120323, end: 20120616

REACTIONS (5)
  - PNEUMONIA [None]
  - DYSPNOEA [None]
  - CHRONIC OBSTRUCTIVE PULMONARY DISEASE [None]
  - HYPOCALCAEMIA [None]
  - NON-SMALL CELL LUNG CANCER [None]
